FAERS Safety Report 9826253 (Version 1)
Quarter: 2014Q1

REPORT INFORMATION
  Report Type: Spontaneous
  Country: CA (occurrence: CA)
  Receive Date: 20140117
  Receipt Date: 20140117
  Transmission Date: 20141002
  Serious: Yes (Death)
  Sender: FDA-Public Use
  Company Number: CA-009507513-1401CAN005367

PATIENT
  Age: 61 Year
  Sex: Male
  Weight: 84 kg

DRUGS (5)
  1. VICTRELIS [Suspect]
     Dosage: 800 MG,3 EVERY 1 DAY
     Route: 048
  2. PEGETRON [Suspect]
     Dosage: 120 MG, 1 EVERY 1 WEEK
     Route: 058
  3. PEGETRON [Suspect]
     Dosage: 600 MG, 2 EVERY 1 DAY
     Route: 048
  4. ACETAMINOPHEN [Concomitant]
     Route: 048
  5. PANTOPRAZOLE [Concomitant]
     Route: 065

REACTIONS (2)
  - Chest pain [Fatal]
  - Fall [Fatal]
